FAERS Safety Report 8078506-6 (Version None)
Quarter: 2012Q1

REPORT INFORMATION
  Report Type: 
  Country: None (occurrence: None)
  Receive Date: 20120127
  Receipt Date: 20110303
  Transmission Date: 20120608
  Serious: No
  Sender: FDA-Public Use
  Company Number: PR-ABBOTT-11P-131-0708713-00

PATIENT
  Sex: Female
  Weight: 66.738 kg

DRUGS (10)
  1. OMEPRAZOLE [Concomitant]
     Indication: GASTRITIS
     Route: 048
  2. PROVENTIL [Concomitant]
     Indication: ASTHMA
     Route: 055
  3. HUMIRA [Suspect]
     Route: 058
  4. PREDNISONE [Concomitant]
     Indication: RHEUMATOID ARTHRITIS
     Route: 048
  5. HUMIRA [Suspect]
     Indication: RHEUMATOID ARTHRITIS
     Route: 058
     Dates: start: 20100401, end: 20101101
  6. SINGULAIR [Concomitant]
     Indication: ASTHMA
     Route: 048
  7. ZYRTEC [Concomitant]
     Indication: HYPERSENSITIVITY
     Route: 048
  8. PROVENTIL [Concomitant]
     Dosage: NEBULIZER, AS INDICATED
     Route: 055
  9. ZEGERID [Concomitant]
     Indication: GASTRITIS
     Route: 048
  10. CARAFATE [Concomitant]
     Indication: GASTRITIS
     Route: 048

REACTIONS (5)
  - BRONCHITIS [None]
  - WEIGHT DECREASED [None]
  - PAIN [None]
  - OVARIAN CYST [None]
  - PANCREATIC DISORDER [None]
